FAERS Safety Report 22964869 (Version 3)
Quarter: 2024Q3

REPORT INFORMATION
  Report Type: Spontaneous
  Country: ES (occurrence: ES)
  Receive Date: 20230921
  Receipt Date: 20240703
  Transmission Date: 20241017
  Serious: Yes (Hospitalization, Other)
  Sender: SANOFI AVENTIS
  Company Number: ES-SA-2023SA284334

PATIENT
  Age: 68 Year
  Sex: Male

DRUGS (4)
  1. ENOXAPARIN SODIUM [Suspect]
     Active Substance: ENOXAPARIN SODIUM
     Indication: Thrombosis prophylaxis
     Dosage: 60 MG, Q12H
  2. ENOXAPARIN SODIUM [Suspect]
     Active Substance: ENOXAPARIN SODIUM
     Dosage: 80 MG, Q12H (ESCALATING DOSE)
  3. BEMIPARIN [Suspect]
     Active Substance: BEMIPARIN
     Indication: Thrombosis prophylaxis
     Dosage: 10000 IU, QD (PRE-FILLED SYRINGE )
     Route: 058
  4. ACENOCOUMAROL [Concomitant]
     Active Substance: ACENOCOUMAROL
     Indication: Anticoagulant therapy
     Dosage: UNK
     Route: 048

REACTIONS (3)
  - Bullous haemorrhagic dermatosis [Recovering/Resolving]
  - Haemorrhagic cyst [Recovering/Resolving]
  - Blister [Recovering/Resolving]
